FAERS Safety Report 6440893-X (Version None)
Quarter: 2009Q4

REPORT INFORMATION
  Report Type: 
  Country: None (occurrence: None)
  Receive Date: 20091116
  Receipt Date: 20091105
  Transmission Date: 20100525
  Serious: Yes (Other)
  Sender: FDA-Public Use
  Company Number: PHEH2009US15325

PATIENT
  Age: 90 Year
  Sex: Female

DRUGS (1)
  1. EXELON [Suspect]
     Dosage: 4.6,  1 PER 24 HRS.

REACTIONS (2)
  - FALL [None]
  - SYNCOPE [None]
